FAERS Safety Report 9817717 (Version 1)
Quarter: 2013Q4

REPORT INFORMATION
  Report Type: Spontaneous
  Country: US (occurrence: None)
  Receive Date: 20131223
  Receipt Date: 20131223
  Transmission Date: 20140711
  Serious: Yes (Other)
  Sender: FDA-Public Use
  Company Number: 218693

PATIENT
  Age: 75 Year
  Sex: Male

DRUGS (2)
  1. PICATO [Suspect]
     Indication: PRODUCT USED FOR UNKNOWN INDICATION
  2. 5-FU [Suspect]
     Indication: PRODUCT USED FOR UNKNOWN INDICATION

REACTIONS (7)
  - Drug ineffective [None]
  - Social problem [None]
  - Skin reaction [None]
  - Adverse event [None]
  - Product quality issue [None]
  - Medication error [None]
  - Incorrect drug administration duration [None]
